FAERS Safety Report 9507246 (Version 2)
Quarter: 2014Q1

REPORT INFORMATION
  Report Type: Spontaneous
  Country: DE (occurrence: DE)
  Receive Date: 20130909
  Receipt Date: 20140207
  Transmission Date: 20141002
  Serious: Yes (Hospitalization, Disabling)
  Sender: FDA-Public Use
  Company Number: PHHY2013DE097634

PATIENT
  Age: 70 Year
  Sex: Male
  Weight: 86 kg

DRUGS (18)
  1. EVEROLIMUS [Suspect]
     Indication: CORONARY ARTERY DISEASE
     Dosage: UNK
     Route: 013
     Dates: start: 201304
  2. ZOTAROLIMUS [Suspect]
     Indication: CORONARY ARTERY DISEASE
     Dosage: UNK UKN, UNK
     Route: 013
     Dates: start: 201305
  3. PLAVIX [Suspect]
     Dosage: 1 DF, QD
     Route: 048
     Dates: start: 201304
  4. BISOPROLOL [Concomitant]
     Indication: CORONARY ARTERY DISEASE
     Dosage: 1 DF, BID
     Route: 048
     Dates: start: 201304
  5. DELIX [Concomitant]
     Dosage: 1 DF, QD, 2.5
  6. SIMVASTATIN [Concomitant]
     Dosage: 1 DF, QD, 20
  7. ASA [Concomitant]
     Dosage: 1 DF, UNK
  8. PANTOZOL [Concomitant]
     Dosage: 1 DF, 40
  9. TOREM [Concomitant]
     Dosage: 1 DF, BID
  10. MACROGOL [Concomitant]
     Dosage: 1 DF, QD, TABLET
  11. MACROGOL [Concomitant]
     Dosage: 1 DF, QD, SACHET
  12. OBSTINOL [Concomitant]
     Dosage: 1 DF, QD
  13. MARCUMAR [Concomitant]
     Dosage: 1 DF, QD
  14. CLOPIDOGREL [Concomitant]
     Dosage: 1 DF, QD
  15. KALINOR                                 /TUR/ [Concomitant]
     Dosage: 1 DF, QD
  16. GLIMEPIRIDE [Concomitant]
     Dosage: 1 DF, QD
  17. BEPANTEN [Concomitant]
     Dosage: UNK UKN, UNK
  18. COLDASTOP [Concomitant]
     Dosage: UNK UKN, UNK

REACTIONS (42)
  - Respiratory failure [Recovered/Resolved with Sequelae]
  - Pulmonary function test decreased [Unknown]
  - Hypoxia [Recovered/Resolved with Sequelae]
  - Hyperventilation [Unknown]
  - Pneumonitis [Recovered/Resolved with Sequelae]
  - Cyanosis [Unknown]
  - Dyspnoea exertional [Unknown]
  - Oxygen saturation decreased [Unknown]
  - Hypoventilation [Recovering/Resolving]
  - Emphysema [Unknown]
  - Respiratory disorder [Unknown]
  - Dyspnoea [Unknown]
  - General physical health deterioration [Unknown]
  - Amnestic disorder [Unknown]
  - Ocular hyperaemia [Unknown]
  - Dilatation atrial [Unknown]
  - Aortic valve disease [Unknown]
  - Aortic valve sclerosis [Unknown]
  - Aortic valve calcification [Unknown]
  - Mitral valve incompetence [Unknown]
  - Ventricular hypertrophy [Unknown]
  - Toxicity to various agents [Unknown]
  - Renal failure chronic [Unknown]
  - Urinary retention [Unknown]
  - Renal atrophy [Unknown]
  - Bone disorder [Unknown]
  - Kyphosis [Unknown]
  - Arrhythmia [Unknown]
  - Cardiac failure [Unknown]
  - Diastolic dysfunction [Unknown]
  - Right ventricular failure [Unknown]
  - Lymphadenopathy mediastinal [Unknown]
  - Cardiac failure congestive [Unknown]
  - Overweight [Unknown]
  - Atrial fibrillation [Unknown]
  - Jaundice [Unknown]
  - Oedema peripheral [Unknown]
  - Interstitial lung disease [Unknown]
  - Alveolitis [Unknown]
  - Epistaxis [Unknown]
  - Pericardial effusion [Unknown]
  - Type 2 diabetes mellitus [Unknown]
